FAERS Safety Report 13207309 (Version 1)
Quarter: 2017Q1

REPORT INFORMATION
  Report Type: Spontaneous
  Country: US (occurrence: US)
  Receive Date: 20170208
  Receipt Date: 20170208
  Transmission Date: 20170428
  Serious: Yes (Hospitalization)
  Sender: FDA-Public Use
  Company Number: None

PATIENT
  Age: 55 Year
  Sex: Female

DRUGS (1)
  1. LETAIRIS [Suspect]
     Active Substance: AMBRISENTAN
     Indication: PULMONARY EMBOLISM
     Route: 048
     Dates: start: 20150825, end: 20170113

REACTIONS (6)
  - Pneumonia [None]
  - Chest pain [None]
  - Oesophageal candidiasis [None]
  - Abdominal pain [None]
  - Back pain [None]
  - Pyrexia [None]

NARRATIVE: CASE EVENT DATE: 20170128
